FAERS Safety Report 8989184 (Version 3)
Quarter: 2013Q2

REPORT INFORMATION
  Report Type: Report from Study
  Country: US (occurrence: US)
  Receive Date: 20121228
  Receipt Date: 20130410
  Transmission Date: 20140414
  Serious: Yes (Life-Threatening, Hospitalization, Other)
  Sender: FDA-Public Use
  Company Number: US-US-EMD SERONO, INC.-7183834

PATIENT
  Age: 44 Year
  Sex: Male

DRUGS (1)
  1. REBIF [Suspect]
     Indication: MULTIPLE SCLEROSIS
     Route: 058
     Dates: start: 20120804, end: 201301

REACTIONS (4)
  - Renal failure [Recovering/Resolving]
  - Staphylococcal infection [Recovered/Resolved]
  - Dehydration [Recovering/Resolving]
  - Hepatic enzyme increased [Unknown]
